FAERS Safety Report 21474754 (Version 2)
Quarter: 2022Q4

REPORT INFORMATION
  Report Type: Spontaneous
  Country: US (occurrence: US)
  Receive Date: 20221018
  Receipt Date: 20221113
  Transmission Date: 20230113
  Serious: Yes (Other)
  Sender: FDA-Public Use
  Company Number: US-JNJFOC-20221023913

PATIENT
  Age: 6 Decade
  Sex: Female

DRUGS (29)
  1. ELMIRON [Suspect]
     Active Substance: PENTOSAN POLYSULFATE SODIUM
     Indication: Cystitis interstitial
     Route: 048
     Dates: start: 2006, end: 202102
  2. PROVENTIL HFA [SALBUTAMOL] [Concomitant]
     Indication: Multiple allergies
     Route: 065
     Dates: start: 20051205, end: 20181223
  3. PROVENTIL HFA [SALBUTAMOL] [Concomitant]
     Indication: Asthma
     Route: 065
     Dates: start: 20191217, end: 20200301
  4. ALLEGRA [Concomitant]
     Active Substance: FEXOFENADINE HYDROCHLORIDE
     Indication: Multiple allergies
     Route: 065
     Dates: start: 20070511, end: 202112
  5. XANAX [Concomitant]
     Active Substance: ALPRAZOLAM
     Indication: Anxiety
     Dates: start: 20130408, end: 2021
  6. LIPITOR [Concomitant]
     Active Substance: ATORVASTATIN CALCIUM
     Indication: Blood cholesterol increased
     Route: 065
     Dates: start: 20141020, end: 202112
  7. AZELASTINE [Concomitant]
     Active Substance: AZELASTINE
     Indication: Eye pruritus
     Dosage: 0.05% (ASTEPRO 0.15% OR OPTIVAR); MULTIPLE COURSES
     Route: 047
     Dates: start: 20080908, end: 20181227
  8. ASTELIN [Concomitant]
     Active Substance: AZELASTINE HYDROCHLORIDE
     Indication: Multiple allergies
     Route: 065
     Dates: start: 20140711, end: 20170314
  9. BYSTOLIC [Concomitant]
     Active Substance: NEBIVOLOL HYDROCHLORIDE
     Indication: Blood pressure measurement
     Route: 065
     Dates: start: 20120212, end: 202112
  10. FLUTICASONE PROPIONATE [Concomitant]
     Active Substance: FLUTICASONE PROPIONATE
     Indication: Multiple allergies
     Dates: start: 20131126, end: 2021
  11. HYDROCORTISONE [Concomitant]
     Active Substance: HYDROCORTISONE
     Dosage: 2.5 %
     Route: 054
     Dates: start: 20140812, end: 20190901
  12. ANALPRAM HC [Concomitant]
     Active Substance: HYDROCORTISONE ACETATE\PRAMOXINE HYDROCHLORIDE
     Dosage: 2.5-1%
     Route: 054
     Dates: start: 20120212, end: 20140601
  13. USTELL [Concomitant]
     Active Substance: HYOSCYAMINE SULFATE\METHENAMINE\METHYLENE BLUE\PHENYL SALICYLATE\SODIUM PHOSPHATE, MONOBASIC, MONOHY
     Indication: Diarrhoea
     Route: 065
     Dates: start: 20051207, end: 20200901
  14. USTELL [Concomitant]
     Active Substance: HYOSCYAMINE SULFATE\METHENAMINE\METHYLENE BLUE\PHENYL SALICYLATE\SODIUM PHOSPHATE, MONOBASIC, MONOHY
     Indication: Bladder disorder
  15. USTELL [Concomitant]
     Active Substance: HYOSCYAMINE SULFATE\METHENAMINE\METHYLENE BLUE\PHENYL SALICYLATE\SODIUM PHOSPHATE, MONOBASIC, MONOHY
     Indication: Abdominal pain
  16. LEVBID [Concomitant]
     Active Substance: HYOSCYAMINE SULFATE
     Indication: Diarrhoea
     Route: 065
     Dates: start: 20051207, end: 20200901
  17. LEVBID [Concomitant]
     Active Substance: HYOSCYAMINE SULFATE
     Indication: Bladder disorder
  18. LEVBID [Concomitant]
     Active Substance: HYOSCYAMINE SULFATE
     Indication: Abdominal pain
  19. LIDOCAINE HCL-HYDROCORTISONE ACETATE [Concomitant]
     Indication: Anorectal disorder
     Dosage: 2.8-0.55 % GEL
     Route: 065
     Dates: start: 20121203, end: 20180912
  20. LOMOTIL [Concomitant]
     Active Substance: ATROPINE SULFATE\DIPHENOXYLATE HYDROCHLORIDE
     Indication: Diarrhoea
     Dates: start: 20090402, end: 202104
  21. REMERON [Concomitant]
     Active Substance: MIRTAZAPINE
     Indication: Antidepressant therapy
     Route: 065
     Dates: start: 20070511, end: 20201201
  22. SINGULAIR [Concomitant]
     Active Substance: MONTELUKAST SODIUM
     Indication: Multiple allergies
     Route: 065
     Dates: start: 20140708, end: 2020
  23. NASONEX [Concomitant]
     Active Substance: MOMETASONE FUROATE
     Indication: Multiple allergies
     Route: 065
     Dates: start: 20080908, end: 20140601
  24. OMEPRAZOLE [Concomitant]
     Active Substance: OMEPRAZOLE
     Indication: Gastrooesophageal reflux disease
     Route: 065
     Dates: start: 20121203, end: 20200901
  25. TOPROL XL [Concomitant]
     Active Substance: METOPROLOL SUCCINATE
     Indication: Blood pressure abnormal
     Dates: start: 20070511, end: 20211201
  26. ULTRAM [Concomitant]
     Active Substance: TRAMADOL HYDROCHLORIDE
     Indication: Pain
     Route: 065
     Dates: start: 20090312, end: 20210301
  27. EFFEXOR [Concomitant]
     Active Substance: VENLAFAXINE HYDROCHLORIDE
     Indication: Antidepressant therapy
     Dosage: 75/150 MG
     Route: 065
     Dates: start: 20071207, end: 20171120
  28. VITAMIN B12 [Concomitant]
     Active Substance: CYANOCOBALAMIN
     Indication: Hypovitaminosis
     Route: 065
     Dates: start: 20080912, end: 20170508
  29. ZOLPIDEM [Concomitant]
     Active Substance: ZOLPIDEM TARTRATE
     Indication: Sleep disorder
     Route: 065
     Dates: start: 20131113, end: 201807

REACTIONS (3)
  - Maculopathy [Unknown]
  - Dry eye [Unknown]
  - Off label use [Unknown]

NARRATIVE: CASE EVENT DATE: 20060101
